FAERS Safety Report 7458204-X (Version None)
Quarter: 2011Q2

REPORT INFORMATION
  Report Type: 
  Country: None (occurrence: None)
  Receive Date: 20110503
  Receipt Date: 20110503
  Transmission Date: 20111010
  Serious: No
  Sender: FDA-Public Use
  Company Number: None

PATIENT
  Age: 61 Year
  Sex: Male
  Weight: 106.5953 kg

DRUGS (1)
  1. ALPHAGAN [Suspect]
     Indication: GLAUCOMA
     Dosage: INSTILL 1 DROP IN BOTH EYES TWICE A DAY FOR GLAUCOMA  3 WEEKS USING LATEST LOT NUMBER; 9MO-1YR TOTAL

REACTIONS (4)
  - NERVE INJURY [None]
  - EYE PAIN [None]
  - INTRAOCULAR PRESSURE INCREASED [None]
  - PRODUCT QUALITY ISSUE [None]
